FAERS Safety Report 16366588 (Version 1)
Quarter: 2019Q3

REPORT INFORMATION
  Report Type: Spontaneous
  Country: US (occurrence: US)
  Receive Date: 20190528
  Receipt Date: 20190528
  Transmission Date: 20191004
  Serious: No
  Sender: FDA-Public Use
  Company Number: None

PATIENT
  Age: 7 Week
  Sex: Female

DRUGS (1)
  1. MOTEGRITY [Suspect]
     Active Substance: PRUCALOPRIDE SUCCINATE
     Indication: GASTROINTESTINAL MOTILITY DISORDER
     Dosage: ?          QUANTITY:1 TABLET(S);?
     Route: 048
     Dates: start: 20190509, end: 20190527

REACTIONS (6)
  - Hallucination, visual [None]
  - Tachyphrenia [None]
  - Panic attack [None]
  - Anxiety [None]
  - Nightmare [None]
  - Visual impairment [None]

NARRATIVE: CASE EVENT DATE: 20190510
